FAERS Safety Report 4485284-6 (Version None)
Quarter: 2004Q4

REPORT INFORMATION
  Report Type: 
  Country: None (occurrence: None)
  Receive Date: 20041021
  Receipt Date: 20041021
  Transmission Date: 20050328
  Serious: Yes (Hospitalization)
  Sender: FDA-Public Use
  Company Number: None

PATIENT
  Sex: Female
  Weight: 4 kg

DRUGS (2)
  1. BOSENTAN  62.5 MG TABLETS  ACTELION [Suspect]
     Indication: PULMONARY HYPERTENSION
     Dosage: SEE IMAGE
     Route: 048
     Dates: start: 20040801, end: 20040901
  2. BOSENTAN  62.5 MG TABLETS  ACTELION [Suspect]
     Indication: PULMONARY HYPERTENSION
     Dosage: SEE IMAGE
     Route: 048
     Dates: start: 20040901, end: 20040929

REACTIONS (1)
  - ANAEMIA [None]
